FAERS Safety Report 9132378 (Version 3)
Quarter: 2014Q2

REPORT INFORMATION
  Report Type: Spontaneous
  Country: US (occurrence: US)
  Receive Date: 20130301
  Receipt Date: 20140618
  Transmission Date: 20141212
  Serious: Yes (Hospitalization, Other)
  Sender: FDA-Public Use
  Company Number: US-009507513-1302USA013037

PATIENT
  Sex: Female

DRUGS (1)
  1. NUVARING [Suspect]
     Indication: CONTRACEPTION
     Dosage: UNK
     Route: 067
     Dates: start: 200507, end: 201207

REACTIONS (6)
  - Haemorrhage intracranial [Unknown]
  - Intracranial venous sinus thrombosis [Unknown]
  - Social phobia [Unknown]
  - Depression [Unknown]
  - Cerebrovascular accident [Unknown]
  - Sinus polyp [Unknown]
